FAERS Safety Report 14827228 (Version 1)
Quarter: 2018Q2

REPORT INFORMATION
  Report Type: Spontaneous
  Country: US (occurrence: US)
  Receive Date: 20180405
  Receipt Date: 20180405
  Transmission Date: 20180711
  Serious: Yes (Hospitalization, Other)
  Sender: FDA-Public Use
  Company Number: None

PATIENT
  Age: 51 Year
  Sex: Male
  Weight: 120.8 kg

DRUGS (2)
  1. IMATINIB [Concomitant]
     Active Substance: IMATINIB
     Dates: start: 20180118
  2. IMATINIB [Suspect]
     Active Substance: IMATINIB
     Indication: GASTROINTESTINAL STROMAL TUMOUR
     Route: 048
     Dates: start: 20180118, end: 20180405

REACTIONS (8)
  - Hypertensive crisis [None]
  - Dyspnoea [None]
  - Fear [None]
  - Fatigue [None]
  - Headache [None]
  - Oedema peripheral [None]
  - Muscle spasms [None]
  - Weight increased [None]

NARRATIVE: CASE EVENT DATE: 20180305
